FAERS Safety Report 10522102 (Version 1)
Quarter: 2014Q4

REPORT INFORMATION
  Report Type: Spontaneous
  Country: US (occurrence: None)
  Receive Date: 20141014
  Receipt Date: 20141014
  Transmission Date: 20150528
  Serious: Yes (Hospitalization)
  Sender: FDA-Public Use
  Company Number: None

PATIENT
  Age: 64 Year
  Sex: Male
  Weight: 87.3 kg

DRUGS (2)
  1. IBUPROFEN. [Suspect]
     Active Substance: IBUPROFEN
     Indication: PAIN
     Dosage: 800 MG, OTHER
     Route: 048
     Dates: start: 20120730, end: 20120905
  2. IBUPROFEN. [Suspect]
     Active Substance: IBUPROFEN
     Indication: PAIN
     Dosage: 800 MG, OTHER
     Route: 048
     Dates: start: 20120731, end: 20120905

REACTIONS (2)
  - Upper gastrointestinal haemorrhage [None]
  - Incorrect drug administration duration [None]

NARRATIVE: CASE EVENT DATE: 20120905
